FAERS Safety Report 19870261 (Version 1)
Quarter: 2021Q3

REPORT INFORMATION
  Report Type: Other
  Country: US (occurrence: US)
  Receive Date: 20210923
  Receipt Date: 20210923
  Transmission Date: 20211014
  Serious: Yes (Other)
  Sender: FDA-Public Use
  Company Number: US-INTERCEPT-PM2021002397

PATIENT
  Age: 64 Year
  Sex: Female
  Weight: 65.31 kg

DRUGS (3)
  1. URSODIOL. [Concomitant]
     Active Substance: URSODIOL
     Indication: PRIMARY BILIARY CHOLANGITIS
     Dosage: 300 MILLIGRAM, TID
  2. NALTREXONE [Concomitant]
     Active Substance: NALTREXONE
     Dosage: 1/4TH TABLET AT BED TIME
  3. OCALIVA [Suspect]
     Active Substance: OBETICHOLIC ACID
     Indication: PRIMARY BILIARY CHOLANGITIS
     Dosage: 5 MILLIGRAM, QD
     Route: 048
     Dates: start: 2016

REACTIONS (8)
  - Arthritis [Unknown]
  - Blood alkaline phosphatase increased [Recovering/Resolving]
  - Rash pruritic [Unknown]
  - Hepatic fibrosis [Unknown]
  - Nocturia [Unknown]
  - Cholestatic pruritus [Recovering/Resolving]
  - Photophobia [Unknown]
  - Fatigue [Recovered/Resolved]

NARRATIVE: CASE EVENT DATE: 201611
